FAERS Safety Report 14846041 (Version 1)
Quarter: 2018Q2

REPORT INFORMATION
  Report Type: Spontaneous
  Country: FR (occurrence: FR)
  Receive Date: 20180504
  Receipt Date: 20180504
  Transmission Date: 20180711
  Serious: Yes (Other)
  Sender: FDA-Public Use
  Company Number: FR-MERCK KGAA-2047186

PATIENT
  Age: 52 Year
  Sex: Male

DRUGS (1)
  1. NOVOTHYROX [Suspect]
     Active Substance: LEVOTHYROXINE SODIUM
     Indication: PRODUCT USED FOR UNKNOWN INDICATION

REACTIONS (14)
  - Fatigue [None]
  - Disturbance in attention [None]
  - Insomnia [None]
  - Decreased activity [None]
  - Sleep disorder [None]
  - Irritability [None]
  - Psychiatric symptom [None]
  - Depression [None]
  - Apathy [None]
  - Blood triglycerides increased [None]
  - Libido decreased [None]
  - Erectile dysfunction [None]
  - Blood thyroid stimulating hormone decreased [Not Recovered/Not Resolved]
  - Self-injurious ideation [None]

NARRATIVE: CASE EVENT DATE: 20170322
